FAERS Safety Report 9312139 (Version 1)
Quarter: 2013Q2

REPORT INFORMATION
  Report Type: Spontaneous
  Country: GR (occurrence: GR)
  Receive Date: 20130528
  Receipt Date: 20130529
  Transmission Date: 20140414
  Serious: Yes (Other)
  Sender: FDA-Public Use
  Company Number: GR-JNJFOC-20130518416

PATIENT
  Age: 24 Year
  Sex: Female

DRUGS (6)
  1. REMICADE [Suspect]
     Indication: COLITIS ULCERATIVE
     Dosage: 3RD INFUSION
     Route: 042
  2. REMICADE [Suspect]
     Indication: COLITIS ULCERATIVE
     Dosage: 100 MG VIAL
     Route: 042
     Dates: start: 201208
  3. AZATHIOPRINE [Suspect]
     Indication: COLITIS ULCERATIVE
     Route: 065
  4. AZATHIOPRINE [Suspect]
     Indication: COLITIS ULCERATIVE
     Dosage: FIRST WEEK
     Route: 065
     Dates: start: 2009
  5. PREZOLON [Suspect]
     Indication: COLITIS ULCERATIVE
     Dosage: {10 MG/DAILY
     Route: 065
  6. PREZOLON [Suspect]
     Indication: COLITIS ULCERATIVE
     Route: 065

REACTIONS (4)
  - Pancreatitis [Unknown]
  - Hypersensitivity [Unknown]
  - Drug ineffective [Unknown]
  - Infusion related reaction [Unknown]
